FAERS Safety Report 15666566 (Version 2)
Quarter: 2018Q4

REPORT INFORMATION
  Report Type: Report from Study
  Country: None (occurrence: AT)
  Receive Date: 20181128
  Receipt Date: 20181210
  Transmission Date: 20190205
  Serious: Yes (Hospitalization)
  Sender: FDA-Public Use
  Company Number: AT-ABBVIE-18P-009-2561627-00

PATIENT
  Age: 88 Year
  Sex: Male
  Weight: 65 kg

DRUGS (28)
  1. VENETOCLAX. [Suspect]
     Active Substance: VENETOCLAX
     Indication: ACUTE MYELOID LEUKAEMIA
     Route: 048
     Dates: start: 20180110, end: 20180110
  2. MOLAXOLE [Concomitant]
     Active Substance: POLYETHYLENE GLYCOL 3350\POTASSIUM CHLORIDE\SODIUM BICARBONATE\SODIUM CHLORIDE
     Indication: CONSTIPATION
     Route: 048
     Dates: start: 2013
  3. XARELTO [Concomitant]
     Active Substance: RIVAROXABAN
     Indication: ATRIAL FIBRILLATION
     Route: 048
     Dates: start: 20180222, end: 20181117
  4. SERACTIL [Concomitant]
     Active Substance: DEXIBUPROFEN
     Route: 048
     Dates: start: 20180511
  5. ELOMEL [Concomitant]
     Indication: PROPHYLAXIS
     Route: 042
     Dates: start: 20180108, end: 20180112
  6. PASPERTIN [Concomitant]
     Indication: PROPHYLAXIS OF NAUSEA AND VOMITING
     Route: 048
     Dates: start: 20180307
  7. LASIX [Concomitant]
     Active Substance: FUROSEMIDE
     Indication: PNEUMONIA
     Dosage: ONE AND A HALF
     Route: 048
     Dates: start: 20180730, end: 20180730
  8. LASIX [Concomitant]
     Active Substance: FUROSEMIDE
     Route: 048
     Dates: start: 20180807, end: 20181117
  9. YOMOGI [Concomitant]
     Indication: PROPHYLAXIS AGAINST DIARRHOEA
     Route: 048
     Dates: start: 20181121, end: 20181128
  10. AZACITIDINE. [Suspect]
     Active Substance: AZACITIDINE
     Dosage: DAYS 1-7 OF 28 DAY CYCLE
     Route: 058
     Dates: start: 20180508
  11. AGLANDIN [Concomitant]
     Indication: URINARY RETENTION
     Route: 048
     Dates: start: 20180425
  12. AGLANDIN [Concomitant]
     Indication: BENIGN PROSTATIC HYPERPLASIA
  13. ANDROFIN [Concomitant]
     Indication: BENIGN PROSTATIC HYPERPLASIA
     Route: 048
     Dates: start: 20180425
  14. SERACTIL [Concomitant]
     Active Substance: DEXIBUPROFEN
     Indication: ARTHRALGIA
     Route: 048
     Dates: start: 20180508, end: 20180510
  15. ALLOPURINOL. [Concomitant]
     Active Substance: ALLOPURINOL
     Indication: PROPHYLAXIS
     Route: 048
     Dates: start: 20180109, end: 20180112
  16. RATIOGRASTIM [Concomitant]
     Active Substance: FILGRASTIM
     Indication: INFECTION PROPHYLAXIS
     Dosage: MIU
     Route: 058
     Dates: start: 20180125, end: 20181029
  17. VENETOCLAX. [Suspect]
     Active Substance: VENETOCLAX
     Route: 048
     Dates: start: 20180112
  18. TRITTICO [Concomitant]
     Active Substance: TRAZODONE HYDROCHLORIDE
     Indication: SLEEP APNOEA SYNDROME
     Route: 048
     Dates: start: 20180307
  19. ANDROFIN [Concomitant]
     Indication: URINARY RETENTION
  20. RATIOGRASTIM [Concomitant]
     Active Substance: FILGRASTIM
     Dosage: MIU
     Route: 058
     Dates: start: 20181030, end: 20181127
  21. VENETOCLAX. [Suspect]
     Active Substance: VENETOCLAX
     Route: 048
     Dates: start: 20180111, end: 20180111
  22. AZACITIDINE. [Suspect]
     Active Substance: AZACITIDINE
     Indication: ACUTE MYELOID LEUKAEMIA
     Dosage: DAYS 1-7 OF 28 DAY CYCLE
     Route: 058
     Dates: start: 20180110, end: 20180410
  23. ALLOPURINOL. [Concomitant]
     Active Substance: ALLOPURINOL
     Indication: HYPERURICAEMIA
  24. VOLTARENGEL [Concomitant]
     Indication: ARTHRALGIA
     Route: 003
     Dates: start: 20180423
  25. PANTOLOC [Concomitant]
     Active Substance: PANTOPRAZOLE SODIUM
     Indication: GASTRITIS PROPHYLAXIS
     Route: 048
     Dates: start: 20180802
  26. RATIOGRASTIM [Concomitant]
     Active Substance: FILGRASTIM
     Indication: PROPHYLAXIS
     Dosage: MIU
     Route: 058
     Dates: start: 20180112, end: 20180124
  27. LASIX [Concomitant]
     Active Substance: FUROSEMIDE
     Indication: DYSPNOEA
     Route: 048
     Dates: start: 20180731, end: 20180806
  28. DEANXIT [Concomitant]
     Active Substance: FLUPENTIXOL DIHYDROCHLORIDE\MELITRACEN HYDROCHLORIDE
     Indication: DEPRESSION
     Route: 048
     Dates: start: 2015

REACTIONS (1)
  - Sepsis [Recovered/Resolved]

NARRATIVE: CASE EVENT DATE: 20181117
